FAERS Safety Report 4381222-5 (Version None)
Quarter: 2004Q2

REPORT INFORMATION
  Report Type: 
  Country: None (occurrence: None)
  Receive Date: 20040617
  Receipt Date: 20040617
  Transmission Date: 20050107
  Serious: Yes (Other)
  Sender: FDA-Public Use
  Company Number: None

PATIENT
  Age: 54 Year
  Sex: Female

DRUGS (4)
  1. ENBREL [Suspect]
     Indication: ANAPHYLACTIC REACTION
     Dosage: 50 MG Q WK
     Dates: start: 20040424
  2. ENBREL [Suspect]
     Indication: ANAPHYLACTIC REACTION
     Dosage: 50 MG Q WK
     Dates: start: 20040501
  3. ENBREL [Suspect]
     Indication: ANAPHYLACTIC REACTION
     Dosage: 50 MG Q WK
     Dates: start: 20040508
  4. INH [Concomitant]

REACTIONS (5)
  - ARTHRALGIA [None]
  - BRONCHOSPASM [None]
  - HYPERSENSITIVITY [None]
  - MYALGIA [None]
  - URTICARIA [None]
